FAERS Safety Report 10664664 (Version 1)
Quarter: 2014Q4

REPORT INFORMATION
  Report Type: Spontaneous
  Country: US (occurrence: None)
  Receive Date: 20141208
  Receipt Date: 20141208
  Transmission Date: 20150529
  Serious: No
  Sender: FDA-Public Use
  Company Number: 2014TUS008187

PATIENT
  Age: 37 Year
  Sex: Female

DRUGS (4)
  1. BRINTELLIX [Suspect]
     Active Substance: VORTIOXETINE HYDROBROMIDE
     Indication: POSTPARTUM DEPRESSION
     Route: 048
     Dates: start: 201402
  2. CELEBREX [Concomitant]
     Active Substance: CELECOXIB
  3. CORTISONE INJECTION [Concomitant]
  4. ADVIL /00044201/ (MEFENAMIC ACID) [Concomitant]

REACTIONS (4)
  - Synovitis [None]
  - Uterine disorder [None]
  - Blood oestrogen decreased [None]
  - Vaginal haemorrhage [None]

NARRATIVE: CASE EVENT DATE: 20140816
